FAERS Safety Report 7524777-1 (Version None)
Quarter: 2011Q2

REPORT INFORMATION
  Report Type: 
  Country: None (occurrence: None)
  Receive Date: 20110606
  Receipt Date: 20110530
  Transmission Date: 20111010
  Serious: Yes (Hospitalization)
  Sender: FDA-Public Use
  Company Number: IT-B.I. PHARMACEUTICALS,INC./RIDGEFIELD-2011-IT-00142IT

PATIENT
  Sex: Male

DRUGS (3)
  1. MICARDIS [Suspect]
     Indication: ESSENTIAL HYPERTENSION
     Dosage: 80 MG
     Route: 048
     Dates: start: 20110324, end: 20110422
  2. RELPAX [Concomitant]
     Route: 048
  3. NEXIUM [Concomitant]
     Dosage: 1 POSOLOGIC UNIT
     Route: 048

REACTIONS (3)
  - ERYTHEMA [None]
  - HYPERTENSION [None]
  - HERPES ZOSTER [None]
